FAERS Safety Report 12350864 (Version 1)
Quarter: 2016Q2

REPORT INFORMATION
  Report Type: Spontaneous
  Country: US (occurrence: None)
  Receive Date: 20160509
  Receipt Date: 20160509
  Transmission Date: 20160815
  Serious: Yes (Disabling)
  Sender: FDA-Public Use
  Company Number: None

PATIENT
  Age: 75 Year
  Sex: Male
  Weight: 97.52 kg

DRUGS (10)
  1. OMEPRAZOL [Concomitant]
     Active Substance: OMEPRAZOLE
  2. CRESTOR [Concomitant]
     Active Substance: ROSUVASTATIN CALCIUM
  3. MULTI VITAMAN [Concomitant]
  4. ISOSORBIDE MONO [Concomitant]
  5. ASPERIN [Concomitant]
  6. LISINOPRIL. [Concomitant]
     Active Substance: LISINOPRIL
  7. FISH OIL [Concomitant]
     Active Substance: FISH OIL
  8. LEVOFLOXACIN 750 MG TAB [Suspect]
     Active Substance: LEVOFLOXACIN
     Indication: PNEUMONIA
     Route: 048
     Dates: start: 20160205, end: 20160208
  9. NITROSTAT [Concomitant]
     Active Substance: NITROGLYCERIN
  10. METOPROLOL. [Concomitant]
     Active Substance: METOPROLOL

REACTIONS (4)
  - Fall [None]
  - Gait disturbance [None]
  - Tendon rupture [None]
  - Coordination abnormal [None]

NARRATIVE: CASE EVENT DATE: 20160208
